FAERS Safety Report 11326302 (Version 1)
Quarter: 2015Q3

REPORT INFORMATION
  Report Type: Spontaneous
  Country: US (occurrence: None)
  Receive Date: 20150629
  Receipt Date: 20150629
  Transmission Date: 20151125
  Serious: No
  Sender: FDA-Public Use
  Company Number: A-NJ2014-108655

PATIENT
  Age: 46 Year
  Sex: Female

DRUGS (5)
  1. TREPROSTINIL [Concomitant]
     Active Substance: TREPROSTINIL
  2. OPSUMIT [Suspect]
     Active Substance: MACITENTAN
     Indication: PULMONARY ARTERIAL HYPERTENSION
     Route: 048
     Dates: start: 20141024
  3. COUMADIN [Concomitant]
     Active Substance: WARFARIN SODIUM
  4. REMODULIN [Concomitant]
     Active Substance: TREPROSTINIL
  5. REVATIO (SILDENAFIL CITRATE) [Concomitant]

REACTIONS (5)
  - Flushing [None]
  - Muscle spasms [None]
  - Erythema [None]
  - Rash [None]
  - Nausea [None]
